FAERS Safety Report 17122105 (Version 1)
Quarter: 2019Q4

REPORT INFORMATION
  Report Type: Spontaneous
  Country: US (occurrence: US)
  Receive Date: 20191206
  Receipt Date: 20191206
  Transmission Date: 20200122
  Serious: No
  Sender: FDA-Public Use
  Company Number: US-PFIZER INC-2019525157

PATIENT
  Age: 81 Year

DRUGS (1)
  1. PREMARIN [Suspect]
     Active Substance: ESTROGENS, CONJUGATED
     Dosage: UNK (^0.03^)

REACTIONS (6)
  - Hyperhidrosis [Unknown]
  - Poor quality sleep [Unknown]
  - Condition aggravated [Unknown]
  - Product prescribing error [Unknown]
  - Nervousness [Unknown]
  - Head discomfort [Unknown]
